FAERS Safety Report 15051603 (Version 2)
Quarter: 2018Q3

REPORT INFORMATION
  Report Type: Spontaneous
  Country: US (occurrence: US)
  Receive Date: 20180622
  Receipt Date: 20180731
  Transmission Date: 20181010
  Serious: Yes (Hospitalization, Other)
  Sender: FDA-Public Use
  Company Number: US-ALLERGAN-1000009576

PATIENT
  Age: 73 Year
  Sex: Female

DRUGS (8)
  1. ARMOUR THYROID [Suspect]
     Active Substance: THYROID, PORCINE
     Dosage: 90 MG, QD
     Route: 048
     Dates: start: 2007, end: 200902
  2. BENICAR [Concomitant]
     Active Substance: OLMESARTAN MEDOXOMIL
     Indication: HYPERTENSION
     Dosage: 40 MG, QD
     Route: 048
  3. ARMOUR THYROID [Suspect]
     Active Substance: THYROID, PORCINE
     Indication: HYPOTHYROIDISM
     Dosage: 60 MG, UNK
     Route: 048
  4. ARMOUR THYROID [Suspect]
     Active Substance: THYROID, PORCINE
     Dosage: 60 MG, QD
     Route: 048
     Dates: start: 200902, end: 200909
  5. ARMOUR THYROID [Suspect]
     Active Substance: THYROID, PORCINE
     Dosage: 60 MG, QD
     Route: 048
     Dates: end: 2007
  6. PROTONIX [Concomitant]
     Active Substance: PANTOPRAZOLE SODIUM
     Indication: GASTROOESOPHAGEAL REFLUX DISEASE
     Dosage: 40 MG, QD
     Route: 048
  7. DETROL [Concomitant]
     Active Substance: TOLTERODINE TARTRATE
     Indication: PRODUCT USED FOR UNKNOWN INDICATION
     Dosage: UNK
     Route: 065
  8. LORATADINE. [Concomitant]
     Active Substance: LORATADINE
     Indication: SEASONAL ALLERGY
     Dosage: 10 MG, QD
     Route: 048

REACTIONS (14)
  - Dyspnoea [Recovered/Resolved]
  - Intentional dose omission [Unknown]
  - Product size issue [Unknown]
  - Drug dispensing error [Unknown]
  - Chronic obstructive pulmonary disease [Not Recovered/Not Resolved]
  - Atrial fibrillation [Recovered/Resolved]
  - Mental status changes [Recovered/Resolved]
  - Cold sweat [Recovered/Resolved]
  - Dizziness [Recovered/Resolved]
  - Myocardial infarction [Unknown]
  - Urinary tract infection [Unknown]
  - Drug dose omission [Unknown]
  - Cardiac failure congestive [Not Recovered/Not Resolved]
  - Atrial fibrillation [Not Recovered/Not Resolved]

NARRATIVE: CASE EVENT DATE: 2007
